FAERS Safety Report 9584355 (Version 1)
Quarter: 2013Q4

REPORT INFORMATION
  Report Type: Spontaneous
  Country: US (occurrence: US)
  Receive Date: 20131002
  Receipt Date: 20131002
  Transmission Date: 20140711
  Serious: No
  Sender: FDA-Public Use
  Company Number: US-AMGEN-USASP2013052434

PATIENT
  Age: 66 Year
  Sex: Male
  Weight: 74.83 kg

DRUGS (12)
  1. ENBREL [Suspect]
     Indication: PRODUCT USED FOR UNKNOWN INDICATION
     Dosage: 50 MG, QWK
     Route: 058
  2. METHOTREXATE [Concomitant]
     Dosage: 2.5 MG, UNK
  3. MELOXICAM [Concomitant]
     Dosage: 7.5 MG, UNK
  4. ALDACTONE                          /00006201/ [Concomitant]
     Dosage: 100 MG, UNK
  5. ZESTRIL [Concomitant]
     Dosage: 10 MG, UNK
  6. SLO-NIACIN [Concomitant]
     Dosage: 250 MG, UNK
  7. SIMVASTATIN [Concomitant]
     Dosage: 20 MG, UNK
  8. CYANOCOBALAMIN [Concomitant]
     Dosage: 1000 MUG, UNK
  9. VITAMIN D                          /00107901/ [Concomitant]
     Dosage: 50000 UNIT, UNK
  10. FOLBIC [Concomitant]
     Dosage: UNK
  11. ECOTRIN [Concomitant]
     Dosage: 325 MG, EC UNK
  12. METFORMIN [Concomitant]
     Indication: DIABETES MELLITUS
     Dosage: 500 MG, UNK

REACTIONS (1)
  - Nodule [Unknown]
